FAERS Safety Report 25239233 (Version 1)
Quarter: 2025Q2

REPORT INFORMATION
  Report Type: Spontaneous
  Country: US (occurrence: None)
  Receive Date: 20250424
  Receipt Date: 20250424
  Transmission Date: 20250716
  Serious: Yes (Hospitalization)
  Sender: FDA-CTU
  Company Number: None

PATIENT
  Age: 59 Year
  Sex: Male

DRUGS (1)
  1. NAPROXEN [Suspect]
     Active Substance: NAPROXEN
     Indication: Pain
     Dates: start: 20250325, end: 20250410

REACTIONS (4)
  - Dizziness [None]
  - Decreased appetite [None]
  - Gastrointestinal haemorrhage [None]
  - Weight decreased [None]

NARRATIVE: CASE EVENT DATE: 20250410
